FAERS Safety Report 25702485 (Version 1)
Quarter: 2025Q3

REPORT INFORMATION
  Report Type: Spontaneous
  Country: US (occurrence: US)
  Receive Date: 20250819
  Receipt Date: 20250819
  Transmission Date: 20251021
  Serious: No
  Sender: IMPEL NEUROPHARMA
  Company Number: US-IMPEL-2025-US-024108

PATIENT
  Age: 55 Year
  Sex: Female

DRUGS (1)
  1. TRUDHESA [Suspect]
     Active Substance: DIHYDROERGOTAMINE MESYLATE
     Indication: Product used for unknown indication
     Route: 045

REACTIONS (1)
  - Blood pressure increased [Unknown]
